FAERS Safety Report 9604082 (Version 3)
Quarter: 2013Q4

REPORT INFORMATION
  Report Type: Spontaneous
  Country: US (occurrence: US)
  Receive Date: 20131008
  Receipt Date: 20131202
  Transmission Date: 20140711
  Serious: No
  Sender: FDA-Public Use
  Company Number: US-009507513-1309USA010711

PATIENT
  Age: 61 Year
  Sex: Female

DRUGS (5)
  1. PEGINTRON [Suspect]
     Indication: CHRONIC HEPATITIS C
     Dosage: UNK
     Dates: start: 20130920
  2. RIBAVIRIN [Suspect]
     Indication: CHRONIC HEPATITIS C
     Dosage: UNK
     Route: 048
     Dates: start: 20130920
  3. METFORMIN [Concomitant]
     Indication: DIABETES MELLITUS
     Dosage: 500 MG, UNK
  4. PRAVASTATIN SODIUM [Concomitant]
     Indication: BLOOD CHOLESTEROL INCREASED
     Dosage: 20 MG, UNK
  5. LISINOPRIL [Concomitant]
     Indication: HYPERTENSION
     Dosage: 5 MG, UNK
     Route: 048

REACTIONS (17)
  - Bone pain [Recovered/Resolved]
  - Skin disorder [Unknown]
  - Mouth injury [Unknown]
  - Syncope [Unknown]
  - Pain [Unknown]
  - Tremor [Unknown]
  - Dry mouth [Unknown]
  - Body temperature increased [Recovered/Resolved]
  - Dysgeusia [Not Recovered/Not Resolved]
  - Dry skin [Unknown]
  - Headache [Unknown]
  - Fatigue [Unknown]
  - Decreased appetite [Unknown]
  - Dizziness [Recovered/Resolved]
  - Myalgia [Unknown]
  - Asthenia [Unknown]
  - Pyrexia [Unknown]
